FAERS Safety Report 20512129 (Version 1)
Quarter: 2022Q1

REPORT INFORMATION
  Report Type: Spontaneous
  Country: US (occurrence: US)
  Receive Date: 20220224
  Receipt Date: 20220224
  Transmission Date: 20220423
  Serious: No
  Sender: FDA-Public Use
  Company Number: US-GILEAD-2022-0570851

PATIENT
  Sex: Female

DRUGS (10)
  1. SOFOSBUVIR\VELPATASVIR [Suspect]
     Active Substance: SOFOSBUVIR\VELPATASVIR
     Indication: Chronic hepatitis C
     Dosage: 1 DOSAGE FORM, QD
     Route: 048
  2. LACTULOSE [Concomitant]
     Active Substance: LACTULOSE
  3. SPIRONOLACTONE [Concomitant]
     Active Substance: SPIRONOLACTONE
  4. FUROSEMIDE [Concomitant]
     Active Substance: FUROSEMIDE
  5. CYPROHEPTADINE [Concomitant]
     Active Substance: CYPROHEPTADINE
  6. QUININE [Concomitant]
     Active Substance: QUININE
  7. PANTOPRAZOLE [Concomitant]
     Active Substance: PANTOPRAZOLE
  8. MULTIVIT [VITAMINS NOS] [Concomitant]
  9. XIFAXAN [Concomitant]
     Active Substance: RIFAXIMIN
  10. VITAMIN D3 [Concomitant]
     Active Substance: CHOLECALCIFEROL

REACTIONS (1)
  - Gastrooesophageal reflux disease [Unknown]
